FAERS Safety Report 13612357 (Version 1)
Quarter: 2017Q2

REPORT INFORMATION
  Report Type: Spontaneous
  Country: NO (occurrence: NO)
  Receive Date: 20170605
  Receipt Date: 20170605
  Transmission Date: 20170830
  Serious: Yes (Other)
  Sender: FDA-Public Use
  Company Number: PHHY2017NO079445

PATIENT

DRUGS (1)
  1. FLUOXETINE [Suspect]
     Active Substance: FLUOXETINE HYDROCHLORIDE
     Indication: PRODUCT USED FOR UNKNOWN INDICATION
     Dosage: 40 MG, UNK
     Route: 065

REACTIONS (7)
  - Speech disorder [Unknown]
  - Agitation [Unknown]
  - Memory impairment [Unknown]
  - Loss of consciousness [Unknown]
  - Disorientation [Unknown]
  - Impulse-control disorder [Unknown]
  - Malaise [Unknown]
